FAERS Safety Report 19189264 (Version 2)
Quarter: 2021Q3

REPORT INFORMATION
  Report Type: Spontaneous
  Country: US (occurrence: US)
  Receive Date: 20210428
  Receipt Date: 20210823
  Transmission Date: 20211014
  Serious: No
  Sender: FDA-Public Use
  Company Number: US-AKCEA THERAPEUTICS, INC.-2021IS001047

PATIENT
  Age: 54 Year
  Sex: Female

DRUGS (2)
  1. TEGSEDI [Suspect]
     Active Substance: INOTERSEN SODIUM
     Indication: HEREDITARY NEUROPATHIC AMYLOIDOSIS
     Route: 058
  2. ISSD (INTEGRATED SYRINGE SAFETY DEVICE) [Suspect]
     Active Substance: DEVICE

REACTIONS (14)
  - Bacterial test positive [Unknown]
  - Red blood cells urine positive [Unknown]
  - Urine leukocyte esterase positive [Unknown]
  - Urine protein/creatinine ratio increased [Unknown]
  - Glucose urine present [Unknown]
  - Urinary sediment present [Unknown]
  - Urinary occult blood positive [Unknown]
  - Glomerular filtration rate decreased [Not Recovered/Not Resolved]
  - Urine abnormality [Unknown]
  - Urinary casts [Unknown]
  - Protein urine present [Unknown]
  - Specific gravity urine abnormal [Unknown]
  - Blood creatinine increased [Unknown]
  - White blood cells urine positive [Unknown]
